FAERS Safety Report 9157845 (Version 3)
Quarter: 2013Q1

REPORT INFORMATION
  Report Type: Spontaneous
  Country: US (occurrence: US)
  Receive Date: 20130312
  Receipt Date: 20130328
  Transmission Date: 20140127
  Serious: No
  Sender: FDA-Public Use
  Company Number: US-VERTEX PHARMACEUTICALS INC.-2013-003291

PATIENT
  Age: 47 Year
  Sex: Male
  Weight: 75 kg

DRUGS (4)
  1. INCIVEK [Suspect]
     Indication: HEPATITIS C
     Dosage: 750 MG, TID
     Route: 048
     Dates: start: 20130301, end: 20130304
  2. PEGASYS [Suspect]
     Indication: HEPATITIS C
     Dosage: 600 MG, BID
     Route: 048
     Dates: start: 20130301, end: 20130304
  3. COPEGUS [Suspect]
     Indication: HEPATITIS C
     Dosage: 180 ?G, QW
     Route: 058
     Dates: start: 20130301, end: 20130304
  4. LEXAPRO [Concomitant]

REACTIONS (2)
  - Rash generalised [Recovered/Resolved]
  - Pruritus [Not Recovered/Not Resolved]
